FAERS Safety Report 8960994 (Version 1)
Quarter: 2012Q4

REPORT INFORMATION
  Report Type: 
  Country: JP (occurrence: JP)
  Receive Date: 20121212
  Receipt Date: 20121212
  Transmission Date: 20130627
  Serious: Yes (Other)
  Sender: FDA-Public Use
  Company Number: JP-PFIZER INC-2012305526

PATIENT
  Age: 2 Year
  Sex: Male

DRUGS (1)
  1. UNASYN-S [Suspect]
     Indication: PNEUMONIA
     Dosage: UNK

REACTIONS (1)
  - Hyponatraemia [Unknown]
